FAERS Safety Report 4661102-8 (Version None)
Quarter: 2005Q2

REPORT INFORMATION
  Report Type: 
  Country: None (occurrence: None)
  Receive Date: 20050511
  Receipt Date: 20050429
  Transmission Date: 20051028
  Serious: Yes (Other)
  Sender: FDA-Public Use
  Company Number: 2005070464

PATIENT
  Age: 50 Year
  Sex: Female

DRUGS (2)
  1. BEXTRA [Suspect]
     Indication: ARTHRALGIA
     Dosage: 20 MG (20 MG, 1 IN 1 D), ORAL
     Route: 048
     Dates: start: 20040101, end: 20050401
  2. DIURETICS (DIURETICS) [Concomitant]

REACTIONS (7)
  - ABDOMINAL DISTENSION [None]
  - CEREBROVASCULAR ACCIDENT [None]
  - CHEST PAIN [None]
  - INFLUENZA [None]
  - PALPITATIONS [None]
  - TACHYCARDIA [None]
  - VOMITING [None]
